FAERS Safety Report 4611413-7 (Version None)
Quarter: 2005Q1

REPORT INFORMATION
  Report Type: 
  Country: None (occurrence: None)
  Receive Date: 20050315
  Receipt Date: 20050315
  Transmission Date: 20050727
  Serious: Yes (Death, Hospitalization)
  Sender: FDA-Public Use
  Company Number: None

PATIENT
  Sex: Male
  Weight: 60.5 kg

DRUGS (4)
  1. CISPLATIN [Suspect]
     Dosage: 50 MG/M2 IV
     Route: 042
     Dates: start: 20040913
  2. ETOPOSIDE [Suspect]
     Dosage: 50 MG/M2 IV
     Route: 042
     Dates: start: 20040913
  3. RADIATION [Suspect]
     Dosage: 180 CGY
     Dates: start: 20040913, end: 20041028
  4. DOCETAXEL [Suspect]
     Dosage: 75 MG/M2 IV

REACTIONS (6)
  - DYSPNOEA [None]
  - HYPOTENSION [None]
  - HYPOXIA [None]
  - LUNG INFECTION [None]
  - LUNG INFILTRATION [None]
  - SHOCK [None]
